FAERS Safety Report 20370589 (Version 1)
Quarter: 2022Q1

REPORT INFORMATION
  Report Type: Spontaneous
  Country: FR (occurrence: FR)
  Receive Date: 20220124
  Receipt Date: 20220124
  Transmission Date: 20220423
  Serious: Yes (Congenital Anomaly, Other)
  Sender: FDA-Public Use
  Company Number: FR-ABBVIE-22K-056-4244185-00

PATIENT
  Weight: 4 kg

DRUGS (2)
  1. VALPROATE SODIUM [Suspect]
     Active Substance: VALPROATE SODIUM
     Indication: Maternal exposure timing unspecified
     Route: 064
  2. FOLIC ACID [Concomitant]
     Active Substance: FOLIC ACID
     Indication: Prophylaxis
     Dates: start: 200610

REACTIONS (15)
  - Autism spectrum disorder [Recovering/Resolving]
  - Foetal exposure during pregnancy [Unknown]
  - Speech disorder developmental [Unknown]
  - Pyelocaliectasis [Unknown]
  - Affective disorder [Unknown]
  - Learning disorder [Unknown]
  - Disturbance in attention [Unknown]
  - Aphasia [Unknown]
  - Behaviour disorder [Unknown]
  - Refraction disorder [Unknown]
  - Hypermetropia [Unknown]
  - Astigmatism [Unknown]
  - Head injury [Unknown]
  - Anxiety [Unknown]
  - Fatigue [Unknown]

NARRATIVE: CASE EVENT DATE: 20071027
